FAERS Safety Report 17515921 (Version 1)
Quarter: 2020Q1

REPORT INFORMATION
  Report Type: Spontaneous
  Country: SE (occurrence: SE)
  Receive Date: 20200309
  Receipt Date: 20200309
  Transmission Date: 20200409
  Serious: Yes (Hospitalization)
  Sender: FDA-Public Use
  Company Number: SE-PFIZER INC-2020100911

PATIENT
  Age: 61 Year
  Sex: Female

DRUGS (2)
  1. METHOTREXATE SODIUM. [Suspect]
     Active Substance: METHOTREXATE SODIUM
     Indication: SPONDYLITIS
     Dosage: 1 DF, WEEKLY
     Route: 065
     Dates: start: 201903, end: 201909
  2. LEVAXIN [Concomitant]
     Active Substance: LEVOTHYROXINE SODIUM
     Dosage: UNK
     Route: 065
     Dates: start: 1997

REACTIONS (5)
  - Decreased appetite [Recovered/Resolved]
  - Pneumonitis [Recovered/Resolved]
  - Pulmonary pain [Recovered/Resolved]
  - Dyspnoea [Recovered/Resolved]
  - Oropharyngeal pain [Recovered/Resolved]

NARRATIVE: CASE EVENT DATE: 201909
